FAERS Safety Report 6964448-3 (Version None)
Quarter: 2010Q3

REPORT INFORMATION
  Report Type: 
  Country: None (occurrence: None)
  Receive Date: 20100903
  Receipt Date: 20100824
  Transmission Date: 20110219
  Serious: Yes (Other)
  Sender: FDA-Public Use
  Company Number: US-PFIZER INC-2010089605

PATIENT
  Sex: Male

DRUGS (1)
  1. GEODON [Suspect]
     Indication: MANIA
     Dosage: 10 MG, SINGLE
     Route: 042
     Dates: start: 20100716

REACTIONS (2)
  - INCORRECT ROUTE OF DRUG ADMINISTRATION [None]
  - SEDATION [None]
